FAERS Safety Report 7918731 (Version 2)
Quarter: 2013Q3

REPORT INFORMATION
  Report Type: Spontaneous
  Country: US (occurrence: US)
  Receive Date: 20110428
  Receipt Date: 20130830
  Transmission Date: 20140515
  Serious: No
  Sender: FDA-Public Use
  Company Number: US-ASTRAZENECA-2011SE22577

PATIENT
  Sex: Female

DRUGS (3)
  1. NEXIUM [Suspect]
     Route: 048
  2. TOPROL XL [Suspect]
     Route: 048
  3. CRESTOR [Suspect]
     Route: 048

REACTIONS (10)
  - Diabetes mellitus [Unknown]
  - Fibromyalgia [Unknown]
  - Osteoarthritis [Unknown]
  - Gastrooesophageal reflux disease [Unknown]
  - Hiatus hernia [Unknown]
  - Hypertension [Unknown]
  - Irritable bowel syndrome [Unknown]
  - Exostosis [Unknown]
  - Pain [Unknown]
  - Drug dose omission [Unknown]
